FAERS Safety Report 5169027-9 (Version None)
Quarter: 2006Q4

REPORT INFORMATION
  Report Type: 
  Country: None (occurrence: None)
  Receive Date: 20061201
  Receipt Date: 20061116
  Transmission Date: 20070319
  Serious: No
  Sender: FDA-Public Use
  Company Number: 061116-0001032

PATIENT
  Age: 0 Year
  Sex: Male

DRUGS (7)
  1. NEOPROFEN [Suspect]
     Indication: PATENT DUCTUS ARTERIOSUS
     Dosage: SEE IMAGE, IV
     Route: 042
     Dates: start: 20061114, end: 20061114
  2. NEOPROFEN [Suspect]
     Indication: PATENT DUCTUS ARTERIOSUS
     Dosage: SEE IMAGE, IV
     Route: 042
     Dates: start: 20061115, end: 20061115
  3. AMPICILLIN SODIUM [Concomitant]
  4. GENTAMICIN [Concomitant]
  5. FENTANYL [Concomitant]
  6. VERSED [Concomitant]
  7. SURFACTANT [Concomitant]

REACTIONS (2)
  - GASTROINTESTINAL PERFORATION [None]
  - NEONATAL DISORDER [None]
